APPROVED DRUG PRODUCT: VENLAFAXINE HYDROCHLORIDE
Active Ingredient: VENLAFAXINE HYDROCHLORIDE
Strength: EQ 75MG BASE
Dosage Form/Route: TABLET;ORAL
Application: A078517 | Product #004
Applicant: PLIVA HRVATSKA DOO
Approved: Jun 13, 2008 | RLD: No | RS: No | Type: DISCN